FAERS Safety Report 13119237 (Version 1)
Quarter: 2017Q1

REPORT INFORMATION
  Report Type: Report from Study
  Country: TW (occurrence: TW)
  Receive Date: 20170116
  Receipt Date: 20170116
  Transmission Date: 20170428
  Serious: Yes (Other)
  Sender: FDA-Public Use
  Company Number: PHHY2016TW182419

PATIENT
  Age: 64 Year
  Sex: Female

DRUGS (3)
  1. ERISPAN [Concomitant]
     Active Substance: FLUDIAZEPAM
     Indication: ANXIETY
     Dosage: 0.25 MG, UNK
     Route: 048
     Dates: start: 20131113, end: 20141126
  2. ICHDERM [Concomitant]
     Indication: RASH
     Dosage: 500 MG, UNK
     Route: 061
     Dates: start: 20150826, end: 20160116
  3. TASIGNA [Suspect]
     Active Substance: NILOTINIB
     Indication: CHRONIC MYELOID LEUKAEMIA
     Dosage: 300 MG, UNK
     Route: 048
     Dates: start: 20131009

REACTIONS (2)
  - Cough [Not Recovered/Not Resolved]
  - Upper respiratory tract infection [Recovering/Resolving]

NARRATIVE: CASE EVENT DATE: 20160113
